FAERS Safety Report 11553089 (Version 5)
Quarter: 2016Q1

REPORT INFORMATION
  Report Type: Report from Study
  Country: FR (occurrence: FR)
  Receive Date: 20150925
  Receipt Date: 20160325
  Transmission Date: 20160525
  Serious: Yes (Other)
  Sender: FDA-Public Use
  Company Number: FR-ASTELLAS-2015US034288

PATIENT
  Age: 3 Year
  Sex: Male
  Weight: 15 kg

DRUGS (4)
  1. MICAFUNGIN [Suspect]
     Active Substance: MICAFUNGIN
     Indication: ANTIFUNGAL PROPHYLAXIS
     Route: 042
     Dates: start: 20141026, end: 20141117
  2. VANCOMYCINE [Concomitant]
     Active Substance: VANCOMYCIN
     Indication: PRODUCT USED FOR UNKNOWN INDICATION
     Dosage: 882 MG, PER 24 HOURS
     Route: 065
     Dates: start: 20141112, end: 20141130
  3. MORPHINE [Concomitant]
     Active Substance: MORPHINE
     Indication: PRODUCT USED FOR UNKNOWN INDICATION
     Dosage: 0.02 MG/KG/HOUR + BOLUS
     Route: 065
     Dates: start: 20141111, end: 20141128
  4. AMPHOTERICIN B. [Concomitant]
     Active Substance: AMPHOTERICIN B
     Indication: ANTIFUNGAL PROPHYLAXIS
     Dosage: UNK UNK, UNKNOWN FREQ.
     Route: 048

REACTIONS (3)
  - Drug ineffective [Recovered/Resolved]
  - Pseudomonal sepsis [Recovered/Resolved]
  - Mucosal inflammation [Recovered/Resolved]

NARRATIVE: CASE EVENT DATE: 20141117
